FAERS Safety Report 18524702 (Version 1)
Quarter: 2020Q4

REPORT INFORMATION
  Report Type: Spontaneous
  Country: DE (occurrence: DE)
  Receive Date: 20201119
  Receipt Date: 20201119
  Transmission Date: 20210114
  Serious: Yes (Other)
  Sender: FDA-Public Use
  Company Number: DE-ASTRAZENECA-2020SF51829

PATIENT
  Sex: Female

DRUGS (6)
  1. PREDNISOLONE. [Concomitant]
     Active Substance: PREDNISOLONE
     Dosage: 12.5 MG
  2. MONTELUKAST [Concomitant]
     Active Substance: MONTELUKAST SODIUM
     Dosage: 10
  3. FLUT/UMEC/VIL [Concomitant]
     Dosage: 1 X 1
  4. BECLO/ACLID/FORM [Concomitant]
     Dosage: 2X2 DOSAGES
  5. FENOT/IPRATR [Concomitant]
     Dosage: 7X
  6. DAXAS [Suspect]
     Active Substance: ROFLUMILAST
     Dosage: 1 X 1 (DAILY)
     Route: 048

REACTIONS (7)
  - Respiratory failure [Unknown]
  - Dyspnoea [Recovering/Resolving]
  - Wheezing [Unknown]
  - Forced expiratory volume decreased [Unknown]
  - Eosinophil count increased [Unknown]
  - Heart rate increased [Unknown]
  - Eosinophil cationic protein increased [Unknown]
